FAERS Safety Report 24037553 (Version 1)
Quarter: 2024Q3

REPORT INFORMATION
  Report Type: Spontaneous
  Country: JP (occurrence: JP)
  Receive Date: 20240702
  Receipt Date: 20240702
  Transmission Date: 20241017
  Serious: Yes (Hospitalization)
  Sender: TAKEDA
  Company Number: JP-TAKEDA-2024TUS065720

PATIENT
  Age: 73 Year
  Sex: Male

DRUGS (1)
  1. LIALDA [Suspect]
     Active Substance: MESALAMINE
     Indication: Colitis ulcerative
     Dosage: UNK, QD
     Route: 048

REACTIONS (4)
  - Hospitalisation [Unknown]
  - Arthritis [Unknown]
  - Drug ineffective [Unknown]
  - Off label use [Unknown]
